FAERS Safety Report 8009955-X (Version None)
Quarter: 2011Q4

REPORT INFORMATION
  Report Type: 
  Country: None (occurrence: None)
  Receive Date: 20111228
  Receipt Date: 20111215
  Transmission Date: 20120403
  Serious: Yes (Hospitalization, Other)
  Sender: FDA-Public Use
  Company Number: PHHY2011DE95221

PATIENT
  Sex: Female
  Weight: 58 kg

DRUGS (14)
  1. BETA BLOCKING AGENTS [Concomitant]
  2. LERCANIDIPINE [Concomitant]
     Indication: HYPERTENSION
     Route: 048
     Dates: start: 20111107
  3. DIOVAN [Suspect]
     Dosage: 160 MG, PER DAY
     Route: 048
     Dates: start: 20111013, end: 20111024
  4. MOXONIDINE [Concomitant]
     Indication: HYPERTENSION
     Route: 048
     Dates: start: 20111107
  5. VENLAFAXINE [Concomitant]
     Indication: ANXIETY DISORDER
     Route: 048
     Dates: start: 20111107
  6. DIURETICS [Concomitant]
     Dates: start: 20110919
  7. DIOVAN [Suspect]
     Dosage: 320 MG, PER DAY
     Route: 048
     Dates: start: 20111024
  8. METOPROLOL SUCCINATE [Concomitant]
     Indication: HYPERTENSION
     Route: 048
     Dates: start: 20100921, end: 20110406
  9. ALPHA RECEPTOR BLOCKER [Concomitant]
  10. CARVEDILOL [Concomitant]
     Indication: HYPERTENSION
     Dosage: 25 MG IN THE MORNING AND 12.5 MG IN THE EVENING PER DAY
     Route: 048
     Dates: start: 20110406
  11. DIOVAN HCT [Suspect]
     Dosage: 1 DF, (160 MG OF VALS AND 12.5 MG OF HYD) PER DAY
     Route: 048
     Dates: start: 20020226, end: 20111013
  12. EBRANTIL [Concomitant]
     Indication: HYPERTENSION
     Route: 048
     Dates: start: 20101104
  13. RASILEZ [Suspect]
     Indication: HYPERTENSION
     Dosage: 300 MG, PER DAY
     Route: 048
     Dates: start: 20100921
  14. TORSEMIDE [Concomitant]
     Indication: HYPERTENSION
     Route: 048
     Dates: start: 20110411, end: 20110530

REACTIONS (6)
  - BLOOD PRESSURE INCREASED [None]
  - BLOOD CHOLESTEROL INCREASED [None]
  - BLOOD PRESSURE INADEQUATELY CONTROLLED [None]
  - BLOOD PRESSURE DIASTOLIC DECREASED [None]
  - LOW DENSITY LIPOPROTEIN INCREASED [None]
  - HYPERTENSIVE CRISIS [None]
